FAERS Safety Report 5190560-8 (Version None)
Quarter: 2006Q4

REPORT INFORMATION
  Report Type: 
  Country: None (occurrence: None)
  Receive Date: 20061222
  Receipt Date: 20061214
  Transmission Date: 20070319
  Serious: Yes (Hospitalization, Other)
  Sender: FDA-Public Use
  Company Number: JP-JNJFOC-20061000102

PATIENT
  Sex: Female
  Weight: 54 kg

DRUGS (23)
  1. REMICADE [Suspect]
     Route: 042
  2. REMICADE [Suspect]
     Route: 042
  3. REMICADE [Suspect]
     Route: 042
  4. REMICADE [Suspect]
     Route: 042
  5. REMICADE [Suspect]
     Route: 042
  6. REMICADE [Suspect]
     Route: 042
  7. REMICADE [Suspect]
     Route: 042
  8. REMICADE [Suspect]
     Route: 042
  9. REMICADE [Suspect]
     Route: 042
  10. REMICADE [Suspect]
     Route: 042
  11. REMICADE [Suspect]
     Indication: RHEUMATOID ARTHRITIS
     Route: 042
  12. RHEUMATREX [Suspect]
     Route: 048
  13. RHEUMATREX [Suspect]
     Route: 048
  14. RHEUMATREX [Suspect]
     Indication: RHEUMATOID ARTHRITIS
     Route: 048
  15. PREDONINE [Suspect]
     Indication: RHEUMATOID ARTHRITIS
     Route: 048
  16. OSTELUC [Concomitant]
     Indication: RHEUMATOID ARTHRITIS
     Route: 048
  17. MUCOSTA [Concomitant]
     Indication: RHEUMATOID ARTHRITIS
     Route: 048
  18. ACTONEL [Concomitant]
     Indication: RHEUMATOID ARTHRITIS
     Route: 048
  19. MEVARICH [Concomitant]
     Indication: RHEUMATOID ARTHRITIS
     Route: 048
  20. PREDNISOLONE [Concomitant]
     Route: 048
  21. PREDNISOLONE [Concomitant]
     Route: 048
  22. PREDNISOLONE [Concomitant]
     Indication: RHEUMATOID ARTHRITIS
     Route: 048
  23. NEUROTROPIN [Concomitant]
     Route: 048

REACTIONS (6)
  - CYST [None]
  - INFLAMMATION [None]
  - LIVER DISORDER [None]
  - NEOPLASM [None]
  - PURULENCE [None]
  - RASH [None]
